FAERS Safety Report 9342942 (Version 1)
Quarter: 2013Q2

REPORT INFORMATION
  Report Type: Spontaneous
  Country: GB (occurrence: GB)
  Receive Date: 20130611
  Receipt Date: 20130611
  Transmission Date: 20140414
  Serious: Yes (Other)
  Sender: FDA-Public Use
  Company Number: GB-VERTEX PHARMACEUTICALS INC-2013-006957

PATIENT
  Age: 35 Year
  Sex: Female

DRUGS (3)
  1. INCIVO [Suspect]
     Indication: HEPATITIS C
     Route: 048
     Dates: start: 201302
  2. RIBAVIRIN [Concomitant]
     Indication: HEPATITIS C
     Dosage: UNK
     Route: 048
     Dates: start: 201302
  3. PEG INTERFERON [Concomitant]
     Indication: HEPATITIS C
     Dosage: UNK
     Route: 058
     Dates: start: 201302

REACTIONS (12)
  - Lower respiratory tract infection [Unknown]
  - Neutropenia [Unknown]
  - Rash [Unknown]
  - Thrombocytopenia [Unknown]
  - Influenza like illness [Unknown]
  - Lethargy [Unknown]
  - Myalgia [Unknown]
  - Insomnia [Unknown]
  - Dyspnoea [Unknown]
  - Productive cough [Unknown]
  - Pruritus [Unknown]
  - Anaemia [Unknown]
